FAERS Safety Report 14539041 (Version 2)
Quarter: 2018Q1

REPORT INFORMATION
  Report Type: Spontaneous
  Country: FR (occurrence: FR)
  Receive Date: 20180216
  Receipt Date: 20180319
  Transmission Date: 20180509
  Serious: Yes (Other)
  Sender: FDA-Public Use
  Company Number: FR-ROCHE-2075106

PATIENT
  Age: 75 Year
  Sex: Male

DRUGS (1)
  1. LUCENTIS [Suspect]
     Active Substance: RANIBIZUMAB
     Indication: AGE-RELATED MACULAR DEGENERATION
     Dosage: DOSE: 10 MG/ML.
     Route: 031
     Dates: end: 20171220

REACTIONS (2)
  - Pseudoendophthalmitis [Recovered/Resolved]
  - Vitritis [Unknown]

NARRATIVE: CASE EVENT DATE: 20171220
